FAERS Safety Report 23532952 (Version 1)
Quarter: 2024Q1

REPORT INFORMATION
  Report Type: Report from Study
  Country: CO (occurrence: CO)
  Receive Date: 20240216
  Receipt Date: 20240216
  Transmission Date: 20240410
  Serious: Yes (Other)
  Sender: FDA-Public Use
  Company Number: CO-ABBVIE-5523628

PATIENT
  Age: 57 Year
  Sex: Female
  Weight: 82 kg

DRUGS (11)
  1. SKYRIZI [Suspect]
     Active Substance: RISANKIZUMAB-RZAA
     Indication: Psoriasis
     Dosage: FORM STRENGTH: 75 MILLIGRAM
     Route: 058
     Dates: start: 20220708, end: 20230810
  2. CETIRIZINE [Concomitant]
     Active Substance: CETIRIZINE HYDROCHLORIDE
     Indication: Pruritus
     Route: 048
     Dates: start: 2023
  3. METOPROLOL [Concomitant]
     Active Substance: METOPROLOL
     Indication: Hypertension
     Dosage: FORM STRENGTH: 100 MILLIGRAM? FREQUENCY TEXT: IN THE MORNING? START DATE TEXT: BEFORE SKYRIZI
     Route: 048
  4. METOPROLOL [Concomitant]
     Active Substance: METOPROLOL
     Indication: Hypertension
     Dosage: FREQUENCY TEXT: AT NIGHT? START DATE TEXT: BEFORE SKYRIZI
     Route: 048
  5. ATORVASTATIN [Concomitant]
     Active Substance: ATORVASTATIN
     Indication: Blood cholesterol abnormal
     Dosage: FORM STRENGTH: 20 MILLIGRAM?START DATE TEXT: BEFORE SKYRIZI
     Route: 048
  6. LOSARTAN [Concomitant]
     Active Substance: LOSARTAN
     Indication: Hypertension
     Dosage: FREQUENCY TEXT: IN THE MORNING?START DATE BEFORE SKYRIZI
     Route: 048
  7. LOSARTAN [Concomitant]
     Active Substance: LOSARTAN
     Indication: Hypertension
     Dosage: START DATE TEXT: BEFORE SKYRIZI
     Route: 048
  8. AMIODARONE [Concomitant]
     Active Substance: AMIODARONE
     Indication: Tachycardia
     Dosage: FORM STRENGTH: 200 MILLIGRAM?START DATE TEXT: BEFORE SKYRIZI
  9. ACETAMINOPHEN [Concomitant]
     Active Substance: ACETAMINOPHEN
     Indication: Influenza like illness
     Dosage: FREQUENCY TEXT: A NECESSITY
     Route: 048
     Dates: start: 202401
  10. ASPIRIN [Concomitant]
     Active Substance: ASPIRIN
     Indication: Hypertension
     Dosage: 1 UNKNOWN?START DATE TEXT: BEFORE SKYRIZI
     Route: 048
  11. Betasol [Concomitant]
     Indication: Product used for unknown indication
     Dosage: FREQUENCY TEXT: APPLIED TO THE FEET EVERY NIGHT
     Route: 061
     Dates: start: 202312

REACTIONS (4)
  - Osteoarthritis [Recovering/Resolving]
  - Gait disturbance [Unknown]
  - Chondropathy [Recovering/Resolving]
  - Meniscopathy [Not Recovered/Not Resolved]

NARRATIVE: CASE EVENT DATE: 20231023
